FAERS Safety Report 4299135-6 (Version None)
Quarter: 2004Q1

REPORT INFORMATION
  Report Type: 
  Country: None (occurrence: None)
  Receive Date: 20040217
  Receipt Date: 20040217
  Transmission Date: 20041129
  Serious: No
  Sender: FDA-Public Use
  Company Number: None

PATIENT
  Age: 62 Year
  Sex: Male
  Weight: 84 kg

DRUGS (23)
  1. CYCLOPHOSPHAMIDE [Suspect]
     Indication: NON-HODGKIN'S LYMPHOMA
     Dosage: 3492 MG X 2 DAYS INTRAVENOUS
     Route: 042
     Dates: start: 20040131, end: 20040201
  2. TOTAL BODY IRRADIATION [Suspect]
     Indication: STEM CELL TRANSPLANT
     Dosage: 150CGY BID DAY X 4
     Dates: start: 20040203, end: 20040205
  3. ACETAMINOPHEN [Concomitant]
  4. CLOTRIMAZOLE [Concomitant]
  5. DEXAMETHASONE [Concomitant]
  6. DIPHENHYDRAMINE HCL [Concomitant]
  7. ENALAPRIL MALEATE [Concomitant]
  8. FUROSEMIDE [Concomitant]
  9. FLUCONAZOLE [Concomitant]
  10. GRANISETRON HCL [Concomitant]
  11. HEPARIN SODIUM [Concomitant]
  12. LEVOFLOXACIN [Concomitant]
  13. LORAZEPAM [Concomitant]
  14. MAGNESIUM SULFATE [Concomitant]
  15. MULTI-VITAMINS [Concomitant]
  16. ONDANESETRON HCL [Concomitant]
  17. PANTOPRAZOLE [Concomitant]
  18. SCOPOLAMINE HYDROBROM [Concomitant]
  19. SIMVASTATIN [Concomitant]
  20. POTASSIUM CHLORIDE [Concomitant]
  21. PERPHENAZINE [Concomitant]
  22. NYSTATIN [Concomitant]
  23. SODIUM FLUORIDE [Concomitant]

REACTIONS (5)
  - BACTERIAL INFECTION [None]
  - BLOOD CULTURE POSITIVE [None]
  - NEUTROPENIA [None]
  - PYREXIA [None]
  - STAPHYLOCOCCAL INFECTION [None]
